FAERS Safety Report 5515000-8 (Version None)
Quarter: 2007Q4

REPORT INFORMATION
  Report Type: 
  Country: None (occurrence: None)
  Receive Date: 20071113
  Receipt Date: 20061109
  Transmission Date: 20080405
  Serious: No
  Sender: FDA-Public Use
  Company Number: A0626775A

PATIENT

DRUGS (3)
  1. COREG [Suspect]
     Indication: HYPERTENSION
     Dosage: 25MG TWICE PER DAY
     Route: 048
  2. ACE INHIBITOR [Concomitant]
     Indication: HYPERTENSION
     Route: 065
  3. DIURETIC [Concomitant]
     Indication: HYPERTENSION
     Route: 065

REACTIONS (1)
  - DRUG INEFFECTIVE [None]
